FAERS Safety Report 17239827 (Version 6)
Quarter: 2020Q3

REPORT INFORMATION
  Report Type: Spontaneous
  Country: JP (occurrence: JP)
  Receive Date: 20200106
  Receipt Date: 20200710
  Transmission Date: 20201102
  Serious: Yes (Life-Threatening)
  Sender: FDA-Public Use
  Company Number: JP-TAKEDA-2019TUS011005

PATIENT
  Age: 61 Year
  Weight: 64 kg

DRUGS (41)
  1. SODIUM GUALENATE HYDRATE [Concomitant]
     Active Substance: SODIUM GUALENATE MONOHYDRATE
     Indication: INFECTION
     Dosage: 4 MILLIGRAM
     Route: 061
     Dates: start: 20190117
  2. TORASEMIDE [Concomitant]
     Active Substance: TORSEMIDE
     Indication: CARDIAC FAILURE
     Dosage: 8 MILLIGRAM, QD
     Route: 048
     Dates: start: 20190117
  3. EPLERENONE. [Concomitant]
     Active Substance: EPLERENONE
     Indication: CARDIAC FAILURE
     Dosage: 25 MILLIGRAM, QD
     Route: 048
     Dates: start: 20190117, end: 20190410
  4. GRANISETRON HYDROCHLORIDE. [Concomitant]
     Active Substance: GRANISETRON HYDROCHLORIDE
     Indication: NAUSEA
     Dosage: 2 MILLIGRAM, 1/WEEK
     Route: 048
     Dates: start: 20190222, end: 20190327
  5. GRANISETRON HYDROCHLORIDE. [Concomitant]
     Active Substance: GRANISETRON HYDROCHLORIDE
     Indication: PROPHYLAXIS
     Dosage: UNK
     Route: 065
  6. DEXAMETHASONE. [Suspect]
     Active Substance: DEXAMETHASONE
     Dosage: UNK, 1/WEEK
     Route: 048
     Dates: start: 20190808
  7. SODIUM GUALENATE HYDRATE [Concomitant]
     Active Substance: SODIUM GUALENATE MONOHYDRATE
     Indication: PROPHYLAXIS
  8. PIMOBENDAN [Concomitant]
     Active Substance: PIMOBENDAN
     Indication: CARDIAC FAILURE
     Dosage: 1.25 MILLIGRAM, QD
     Route: 048
     Dates: start: 20190117
  9. TOLVAPTAN [Concomitant]
     Active Substance: TOLVAPTAN
     Dosage: 7.5 MILLIGRAM, QD
     Route: 048
     Dates: start: 20190207, end: 20190213
  10. LECICARBON                         /01589001/ [Concomitant]
     Dosage: UNK
     Route: 054
     Dates: start: 20190514, end: 20190523
  11. SHAKUYAKUKANZOTO [Concomitant]
     Active Substance: HERBALS
     Indication: HICCUPS
     Dosage: UNK
     Route: 048
     Dates: start: 20190224
  12. HEPARINOID [Concomitant]
     Active Substance: CHONDROITIN SULFATE (BOVINE)
     Indication: XERODERMA
     Dosage: UNK
     Route: 061
     Dates: start: 20190117
  13. TOLVAPTAN [Concomitant]
     Active Substance: TOLVAPTAN
     Dosage: 15 MILLIGRAM, QD
     Route: 048
     Dates: start: 20190221
  14. BUTYRIC ACID [Concomitant]
     Active Substance: BUTYRIC ACID
     Indication: CONSTIPATION
     Dosage: 1 GRAM, TID
     Route: 048
     Dates: start: 20190117
  15. AMIODARONE HYDROCHLORIDE. [Concomitant]
     Active Substance: AMIODARONE HYDROCHLORIDE
     Indication: CARDIAC FAILURE
     Dosage: 200 MILLIGRAM, QD
     Route: 048
     Dates: start: 20190330
  16. LUBIPROSTONE [Concomitant]
     Active Substance: LUBIPROSTONE
     Indication: CONSTIPATION
     Dosage: 24 MICROGRAM, BID
     Route: 048
     Dates: start: 20190513, end: 20190916
  17. VORICONAZOLE. [Concomitant]
     Active Substance: VORICONAZOLE
     Indication: INFECTION
     Dosage: 100 MILLIGRAM
     Route: 048
     Dates: start: 20190304
  18. LEVOFLOXACIN. [Concomitant]
     Active Substance: LEVOFLOXACIN
     Indication: INFECTION PROPHYLAXIS
     Dosage: 500 MILLIGRAM, QD
     Route: 048
     Dates: start: 20190419, end: 20190511
  19. PARACETAMOL [Concomitant]
     Active Substance: ACETAMINOPHEN
     Indication: INFECTION
     Dosage: 4000 MILLIGRAM, TID
     Route: 048
     Dates: start: 20190620, end: 20190703
  20. PARACETAMOL [Concomitant]
     Active Substance: ACETAMINOPHEN
     Indication: HERPES ZOSTER
     Dosage: 400 MILLIGRAM
     Route: 048
     Dates: start: 20190419, end: 20190423
  21. FEBUXOSTAT. [Concomitant]
     Active Substance: FEBUXOSTAT
     Indication: HYPERURICAEMIA
     Dosage: 10 MILLIGRAM, QD
     Route: 048
     Dates: start: 20190221
  22. CARVEDILOL. [Concomitant]
     Active Substance: CARVEDILOL
     Indication: CARDIAC FAILURE
     Dosage: 1.25 MILLIGRAM, QD
     Route: 065
     Dates: start: 20190117, end: 20190223
  23. LEVOFLOXACIN. [Concomitant]
     Active Substance: LEVOFLOXACIN
     Dosage: 500 MILLIGRAM, QD
     Route: 048
     Dates: start: 20190512
  24. GLUCOSE [Concomitant]
     Active Substance: DEXTROSE
     Indication: FLUID REPLACEMENT
     Dosage: 250 MILLILITER, QD
     Route: 030
     Dates: start: 20190223, end: 20190301
  25. GRANISETRON HYDROCHLORIDE. [Concomitant]
     Active Substance: GRANISETRON HYDROCHLORIDE
     Dosage: 3 MILLIGRAM, 1/WEEK
     Route: 042
     Dates: start: 20190404
  26. VORICONAZOLE. [Concomitant]
     Active Substance: VORICONAZOLE
     Dosage: 100 MILLIGRAM, BID
     Dates: start: 20190504, end: 20190511
  27. PARACETAMOL [Concomitant]
     Active Substance: ACETAMINOPHEN
     Indication: POST HERPETIC NEURALGIA
     Dosage: 400 MILLIGRAM, QD
     Route: 048
     Dates: start: 20191110, end: 20191112
  28. BORTEZOMIB. [Suspect]
     Active Substance: BORTEZOMIB
     Indication: AMYLOIDOSIS
     Dosage: 1.3 MILLIGRAM/SQ. METER, 1/WEEK
     Route: 058
     Dates: start: 20190222, end: 20190222
  29. DARATUMUMAB [Suspect]
     Active Substance: DARATUMUMAB
     Indication: AMYLOIDOSIS
     Dosage: 1800 MILLIGRAM, 1/WEEK
     Route: 058
     Dates: start: 20190222, end: 20190222
  30. LOSARTAN POTASSIUM. [Concomitant]
     Active Substance: LOSARTAN POTASSIUM
     Indication: CARDIAC FAILURE
     Dosage: 25 MILLIGRAM, QD
     Route: 048
     Dates: start: 20190117, end: 20190223
  31. CYCLOPHOSPHAMIDE. [Concomitant]
     Active Substance: CYCLOPHOSPHAMIDE
     Indication: AMYLOIDOSIS
     Dosage: 300 MILLIGRAM/SQ. METER, 1/WEEK
     Route: 042
     Dates: start: 20190404
  32. ROPIVACAINE HYDROCHLORIDE. [Concomitant]
     Active Substance: ROPIVACAINE HYDROCHLORIDE
     Indication: HERPES ZOSTER
     Dosage: 75 MILLIGRAM
     Route: 061
     Dates: start: 20190725, end: 20190819
  33. CYCLOPHOSPHAMIDE. [Suspect]
     Active Substance: CYCLOPHOSPHAMIDE
     Indication: AMYLOIDOSIS
     Dosage: 300 MILLIGRAM/SQ. METER, 1/WEEK
     Route: 048
     Dates: start: 20190222, end: 20190327
  34. DEXAMETHASONE. [Suspect]
     Active Substance: DEXAMETHASONE
     Indication: AMYLOIDOSIS
     Dosage: 40 MILLIGRAM, 1/WEEK
     Route: 048
     Dates: start: 20190222, end: 20190223
  35. TOLVAPTAN [Concomitant]
     Active Substance: TOLVAPTAN
     Indication: CARDIAC FAILURE
     Dosage: 3.75 MILLIGRAM, QD
     Route: 048
     Dates: start: 20190202, end: 20190206
  36. GLUCOSE [Concomitant]
     Active Substance: DEXTROSE
     Dosage: 211.2 MILLILITER, QD
     Route: 042
     Dates: start: 20190419, end: 20190509
  37. DEXAMETHASONE. [Suspect]
     Active Substance: DEXAMETHASONE
     Dosage: 32 MILLIGRAM, 1/WEEK
     Route: 048
     Dates: start: 20190412
  38. TOLVAPTAN [Concomitant]
     Active Substance: TOLVAPTAN
     Dosage: 11.25 MILLIGRAM, QD
     Route: 048
     Dates: start: 20190214, end: 20190220
  39. BUTYRIC ACID [Concomitant]
     Active Substance: BUTYRIC ACID
     Indication: PROPHYLAXIS
  40. MESALAZINE [Concomitant]
     Active Substance: MESALAMINE
     Indication: COLITIS ULCERATIVE
     Dosage: 1200 MILLIGRAM, TID
     Route: 048
     Dates: start: 20190117
  41. ROPIVACAINE HYDROCHLORIDE. [Concomitant]
     Active Substance: ROPIVACAINE HYDROCHLORIDE
     Indication: POST HERPETIC NEURALGIA
     Dosage: 75 MILLIGRAM
     Route: 061

REACTIONS (1)
  - Syncope [Recovered/Resolved]

NARRATIVE: CASE EVENT DATE: 20190223
